FAERS Safety Report 6630212-8 (Version None)
Quarter: 2010Q1

REPORT INFORMATION
  Report Type: 
  Country: None (occurrence: None)
  Receive Date: 20100311
  Receipt Date: 20100302
  Transmission Date: 20100710
  Serious: Yes (Other)
  Sender: FDA-Public Use
  Company Number: A0844779A

PATIENT
  Sex: Female

DRUGS (8)
  1. PROMACTA [Suspect]
     Indication: THROMBOCYTOPENIA
     Route: 048
     Dates: start: 20090226, end: 20100219
  2. DECADRON [Concomitant]
  3. PLAQUENIL [Concomitant]
  4. ACTONEL [Concomitant]
     Dosage: 150MG MONTHLY
  5. SPIRONOLACTONE [Concomitant]
     Dosage: 50MG PER DAY
  6. HYDROXYCHLOROQUINE SULFATE [Concomitant]
     Dosage: 400MG PER DAY
  7. TOPROL-XL [Concomitant]
     Dosage: 25MG PER DAY
  8. WARFARIN SODIUM [Concomitant]
     Dosage: 5MG PER DAY

REACTIONS (1)
  - BLOOD ALKALINE PHOSPHATASE INCREASED [None]
